FAERS Safety Report 9931731 (Version 1)
Quarter: 2014Q1

REPORT INFORMATION
  Report Type: Spontaneous
  Country: US (occurrence: US)
  Receive Date: 20140228
  Receipt Date: 20140228
  Transmission Date: 20141002
  Serious: No
  Sender: FDA-Public Use
  Company Number: US-009507513-1402USA011351

PATIENT
  Sex: 0

DRUGS (1)
  1. NUVARING [Suspect]
     Dosage: STRENGTH 0.015/0.12 MG, 1 STANDARD DOSE OF 1
     Route: 067

REACTIONS (1)
  - Chlamydial infection [Unknown]
